FAERS Safety Report 5747663-6 (Version None)
Quarter: 2008Q2

REPORT INFORMATION
  Report Type: 
  Country: None (occurrence: None)
  Receive Date: 20080523
  Receipt Date: 20080512
  Transmission Date: 20081010
  Serious: Yes (Other)
  Sender: FDA-Public Use
  Company Number: JP-PURDUE-MAG_2008_0000663

PATIENT
  Age: 74 Year
  Sex: Male

DRUGS (22)
  1. OXYCODONE HCL [Suspect]
     Indication: CANCER PAIN
     Dosage: 5 MG, BID
     Route: 048
     Dates: start: 20080204, end: 20080204
  2. OXYCODONE HCL [Suspect]
     Dosage: 2.5 MG, TID
     Route: 048
     Dates: start: 20080202, end: 20080202
  3. OXYCODONE HCL [Suspect]
     Dosage: 2.5 MG, QID
     Route: 048
     Dates: start: 20080130, end: 20080201
  4. OXYCODONE HCL [Suspect]
     Dosage: 2.5 MG, QID
     Route: 048
     Dates: start: 20080127, end: 20080128
  5. OXYCODONE HCL [Suspect]
     Dosage: 2.5 MG, QID
     Route: 048
     Dates: start: 20080125, end: 20080125
  6. OXYCODONE HCL [Suspect]
     Dosage: 2.5 MG, QID
     Route: 048
     Dates: start: 20080123, end: 20080123
  7. OXYCODONE HCL [Suspect]
     Indication: CANCER PAIN
     Dosage: 5 MG, BID
     Route: 048
     Dates: start: 20080121, end: 20080125
  8. OXYCODONE HCL [Suspect]
     Dosage: 5 MG, TID
     Route: 048
     Dates: start: 20080126, end: 20080205
  9. ROPION [Suspect]
     Indication: CANCER PAIN
     Dosage: 100 MG, DAILY
     Route: 042
  10. BFLUID [Suspect]
     Indication: TONGUE NEOPLASM
     Dosage: 500 ML, DAILY
     Route: 042
     Dates: end: 20080125
  11. NEOPAREN [Suspect]
     Indication: TONGUE NEOPLASM
     Dosage: 200 ML, DAILY
     Route: 042
     Dates: start: 20080125, end: 20080130
  12. CODEINE SUL TAB [Concomitant]
     Indication: CANCER PAIN
     Dosage: 40 MG, DAILY
     Route: 048
     Dates: start: 20080109, end: 20080111
  13. CODEINE SUL TAB [Concomitant]
     Dosage: 60 MG, DAILY
     Route: 048
     Dates: start: 20080112, end: 20080120
  14. GASMOTIN [Concomitant]
     Indication: PROPHYLAXIS
     Dosage: 15 MG, DAILY
     Route: 048
     Dates: start: 20080121, end: 20080205
  15. ZANTAC [Concomitant]
     Indication: PROPHYLAXIS
     Dosage: 300 MG, DAILY
     Route: 048
     Dates: start: 20080121, end: 20080205
  16. MUCODYNE [Concomitant]
     Dosage: 750 MG, DAILY
     Route: 048
     Dates: start: 20080118, end: 20080205
  17. PAXIL [Concomitant]
     Indication: CANCER PAIN
     Dosage: 10 MG, DAILY
     Route: 048
     Dates: start: 20080121, end: 20080205
  18. MAGNESIUM OXIDE [Concomitant]
     Indication: PROPHYLAXIS
     Dosage: 1000 MG, DAILY
     Route: 048
     Dates: start: 20080121, end: 20080205
  19. SENNOSIDE [Concomitant]
     Indication: PROPHYLAXIS
     Dosage: 12 MG, DAILY
     Route: 048
     Dates: start: 20080121, end: 20080205
  20. MYSLEE [Concomitant]
     Dosage: 5 MG, DAILY
     Route: 048
     Dates: end: 20080205
  21. PENTCILLIN [Concomitant]
     Dosage: 4 GRAM, DAILY
     Route: 042
     Dates: end: 20080125
  22. PENTCILLIN [Concomitant]
     Dosage: 6 GRAM, DAILY
     Route: 042
     Dates: start: 20080126, end: 20080128

REACTIONS (2)
  - BLOOD POTASSIUM INCREASED [None]
  - HEPATIC FUNCTION ABNORMAL [None]
